FAERS Safety Report 8408328-5 (Version None)
Quarter: 2012Q2

REPORT INFORMATION
  Report Type: 
  Country: None (occurrence: None)
  Receive Date: 20120604
  Receipt Date: 20120529
  Transmission Date: 20120825
  Serious: Yes (Hospitalization, Disabling)
  Sender: FDA-Public Use
  Company Number: IE-BAYER-2012-052811

PATIENT
  Age: 50 Year
  Sex: Female

DRUGS (1)
  1. ULTRAVIST 150 [Suspect]
     Indication: COMPUTERISED TOMOGRAM HEAD
     Dosage: 220 ML, ONCE
     Route: 042

REACTIONS (4)
  - ENCEPHALOPATHY [None]
  - HEMIPARESIS [None]
  - MUSCLE SPASTICITY [None]
  - BRAIN OEDEMA [None]
